FAERS Safety Report 9641655 (Version 2)
Quarter: 2013Q4

REPORT INFORMATION
  Report Type: Spontaneous
  Country: JP (occurrence: JP)
  Receive Date: 20131023
  Receipt Date: 20131023
  Transmission Date: 20140711
  Serious: Yes (Hospitalization, Other)
  Sender: FDA-Public Use
  Company Number: JP-TAKEDA-TPA2012A06963

PATIENT
  Sex: 0

DRUGS (10)
  1. FEBURIC [Suspect]
     Indication: HYPERURICAEMIA
     Route: 048
     Dates: start: 20120727, end: 20120804
  2. LASIX [Concomitant]
     Dosage: 40 MG, QD
     Route: 048
  3. ANGINAL [Concomitant]
     Dosage: 300 MG, QD
     Route: 048
     Dates: start: 20120427
  4. FAMOTIDINE [Concomitant]
     Dosage: 10 MG, QD
     Route: 048
     Dates: start: 20120418
  5. URSO [Concomitant]
     Dosage: 900 MG, QD
     Route: 048
  6. FLUITRAN [Concomitant]
     Dosage: 4 MG, QD
     Route: 048
     Dates: start: 20120525
  7. PREDONINE [Concomitant]
     Dosage: 15 MG, QD
     Route: 048
     Dates: start: 20120410
  8. SLOW-K [Concomitant]
     Dosage: 1200 MG, QD
     Route: 048
     Dates: start: 20120605
  9. TRITEREN [Concomitant]
     Dosage: 50 MG, QD
     Route: 048
  10. SENNOSIDE [Concomitant]
     Route: 048

REACTIONS (1)
  - Stevens-Johnson syndrome [Not Recovered/Not Resolved]
